FAERS Safety Report 20689866 (Version 2)
Quarter: 2022Q2

REPORT INFORMATION
  Report Type: Spontaneous
  Country: US (occurrence: US)
  Receive Date: 20220408
  Receipt Date: 20220510
  Transmission Date: 20220721
  Serious: Yes (Life-Threatening, Hospitalization, Other)
  Sender: FDA-Public Use
  Company Number: US-009507513-2203USA010372

PATIENT
  Age: 14 Year
  Sex: Female

DRUGS (3)
  1. PEGINTRON [Suspect]
     Active Substance: PEGINTERFERON ALFA-2B
     Indication: Hepatocellular carcinoma
     Dosage: 6 CYCLES
  2. NIVOLUMAB [Concomitant]
     Active Substance: NIVOLUMAB
     Indication: Hepatocellular carcinoma
     Dosage: 6 CYCLES
  3. CAPECITABINE [Concomitant]
     Active Substance: CAPECITABINE
     Indication: Hepatocellular carcinoma
     Dosage: 6 CYCLES

REACTIONS (2)
  - Type 1 diabetes mellitus [Recovered/Resolved]
  - Immune-mediated adrenal insufficiency [Unknown]
